FAERS Safety Report 7397489-5 (Version None)
Quarter: 2011Q2

REPORT INFORMATION
  Report Type: 
  Country: None (occurrence: None)
  Receive Date: 20110406
  Receipt Date: 20110324
  Transmission Date: 20111010
  Serious: Yes (Other)
  Sender: FDA-Public Use
  Company Number: PHHY2011CA24406

PATIENT
  Age: 28 Year
  Sex: Male

DRUGS (12)
  1. RENAL MULTIVITAMIN [Concomitant]
     Dosage: UNK UKN, UNK
  2. GLUTAMINE [Concomitant]
     Dosage: UNK UKN, UNK
     Dates: start: 20070101
  3. ACETYLCARNITINE [Concomitant]
     Dosage: 1 G, TID
     Dates: start: 20070101
  4. OMEGA-3 FATTY ACIDS [Concomitant]
     Dosage: UNK UKN, UNK
     Dates: start: 20070101
  5. PRASTERONE [Suspect]
     Indication: HYPERTHYROIDISM
     Dosage: 100MG DAILY
  6. FLUTICASONE PROPIONATE [Concomitant]
     Dosage: 125 UG, BID
  7. B-HYDROXY-B-METHYLBUTYRATE [Concomitant]
     Dosage: 1 G, TID
     Dates: start: 20070101
  8. CALCITRIOL [Concomitant]
     Dosage: 0.5 UG, TID
  9. ALBUTEROL [Concomitant]
     Dosage: UNK UKN, UNK
  10. COQ10 [Concomitant]
     Dosage: 200 MG, TID
     Dates: start: 20070101
  11. SEVELAMER [Concomitant]
     Dosage: UNK UKN, UNK
  12. SOMATROPIN [Suspect]
     Indication: HYPERTHYROIDISM
     Dosage: 2 IU, BID

REACTIONS (11)
  - BLOOD PARATHYROID HORMONE INCREASED [None]
  - TENDON CALCIFICATION [None]
  - MUSCULOSKELETAL DISORDER [None]
  - ARTHRALGIA [None]
  - BLOOD PRESSURE SYSTOLIC INCREASED [None]
  - TENDON RUPTURE [None]
  - FALL [None]
  - HAEMATOMA [None]
  - BLOOD ALKALINE PHOSPHATASE INCREASED [None]
  - JOINT SWELLING [None]
  - OSTEOPOROSIS [None]
